FAERS Safety Report 11457416 (Version 1)
Quarter: 2015Q3

REPORT INFORMATION
  Report Type: Spontaneous
  Country: US (occurrence: None)
  Receive Date: 20150903
  Receipt Date: 20150903
  Transmission Date: 20151125
  Serious: Yes (Hospitalization)
  Sender: FDA-Public Use
  Company Number: None

PATIENT
  Age: 72 Year
  Sex: Female
  Weight: 59 kg

DRUGS (1)
  1. TEMOZOLOMIDE. [Suspect]
     Active Substance: TEMOZOLOMIDE
     Dates: end: 20150629

REACTIONS (3)
  - Brain oedema [None]
  - Complex partial seizures [None]
  - Nuclear magnetic resonance imaging abnormal [None]

NARRATIVE: CASE EVENT DATE: 20150801
